FAERS Safety Report 18321964 (Version 1)
Quarter: 2020Q3

REPORT INFORMATION
  Report Type: Spontaneous
  Country: US (occurrence: US)
  Receive Date: 20200928
  Receipt Date: 20200928
  Transmission Date: 20201103
  Serious: Yes (Other)
  Sender: FDA-Public Use
  Company Number: US-PFIZER INC-2020372815

PATIENT
  Age: 61 Year
  Sex: Female
  Weight: 81.65 kg

DRUGS (4)
  1. IBRANCE [Suspect]
     Active Substance: PALBOCICLIB
     Dosage: 75 MG, 1X/DAY (FOR 3 WEEKS)
     Route: 048
     Dates: start: 201912
  2. LETROZOLE. [Suspect]
     Active Substance: LETROZOLE
     Indication: BREAST CANCER STAGE IV
     Dosage: UNK, DAILY (EVERY DAY WITH THE IBRANCE)
  3. IBRANCE [Suspect]
     Active Substance: PALBOCICLIB
     Dosage: 100 MG
  4. IBRANCE [Suspect]
     Active Substance: PALBOCICLIB
     Indication: BREAST CANCER STAGE IV
     Dosage: 125 MG
     Dates: start: 201909

REACTIONS (2)
  - Infection [Unknown]
  - Pneumonia [Unknown]

NARRATIVE: CASE EVENT DATE: 2019
